FAERS Safety Report 6057602-9 (Version None)
Quarter: 2009Q1

REPORT INFORMATION
  Report Type: 
  Country: None (occurrence: None)
  Receive Date: 20090127
  Receipt Date: 20090127
  Transmission Date: 20090719
  Serious: Yes (Disabling, Other)
  Sender: FDA-Public Use
  Company Number: None

PATIENT
  Age: 43 Year
  Sex: Female
  Weight: 61.2356 kg

DRUGS (1)
  1. CYMBALTA [Suspect]
     Indication: SEASONAL AFFECTIVE DISORDER
     Dosage: 60 MG 1 X DAY PO
     Route: 048
     Dates: start: 20070610, end: 20090123

REACTIONS (13)
  - ABDOMINAL PAIN UPPER [None]
  - BLADDER HYPERTROPHY [None]
  - CHEST PAIN [None]
  - CHILLS [None]
  - DIZZINESS POSTURAL [None]
  - HEPATIC ENZYME INCREASED [None]
  - HEPATIC FUNCTION ABNORMAL [None]
  - NAUSEA [None]
  - NIGHT SWEATS [None]
  - PALPITATIONS [None]
  - PREHYPERTENSION [None]
  - PYREXIA [None]
  - WEIGHT INCREASED [None]
